FAERS Safety Report 17354793 (Version 1)
Quarter: 2020Q1

REPORT INFORMATION
  Report Type: Spontaneous
  Country: JP (occurrence: JP)
  Receive Date: 20200131
  Receipt Date: 20200131
  Transmission Date: 20200409
  Serious: Yes (Other)
  Sender: FDA-Public Use
  Company Number: NVSJ2020JP001105

PATIENT
  Age: 94 Year
  Sex: Female

DRUGS (1)
  1. METFORMIN,VILDAGLIPTIN [Suspect]
     Active Substance: METFORMIN\VILDAGLIPTIN
     Indication: TYPE 2 DIABETES MELLITUS
     Dosage: UNK
     Route: 065

REACTIONS (4)
  - Rash [Unknown]
  - Blister [Unknown]
  - Pruritus [Unknown]
  - Pemphigoid [Unknown]
